FAERS Safety Report 17761762 (Version 1)
Quarter: 2020Q2

REPORT INFORMATION
  Report Type: Spontaneous
  Country: US (occurrence: US)
  Receive Date: 20200508
  Receipt Date: 20200508
  Transmission Date: 20200714
  Serious: Yes (Other)
  Sender: FDA-Public Use
  Company Number: US-ASTRAZENECA-2020SE59215

PATIENT
  Age: 529 Month
  Sex: Female
  Weight: 88.5 kg

DRUGS (9)
  1. COMBIVENT RESPIMAT [Concomitant]
     Active Substance: ALBUTEROL SULFATE\IPRATROPIUM BROMIDE
     Indication: CHEST DISCOMFORT
     Dosage: 20MCG/100MCG/ACTUATION
     Route: 055
     Dates: start: 2020
  2. IPRAPROPIUM [Concomitant]
     Indication: CHRONIC OBSTRUCTIVE PULMONARY DISEASE
     Dosage: 0.5 MG/3MG/3ML EVERY 5-6 HOURS
     Route: 055
     Dates: start: 202001
  3. COMBIVENT RESPIMAT [Concomitant]
     Active Substance: ALBUTEROL SULFATE\IPRATROPIUM BROMIDE
     Indication: ASTHMA
     Dosage: 20MCG/100MCG/ACTUATION
     Route: 055
     Dates: start: 2020
  4. SYMBICORT [Suspect]
     Active Substance: BUDESONIDE\FORMOTEROL FUMARATE DIHYDRATE
     Indication: ASTHMA
     Dosage: 80/4.5 MCG 2 PUFFS, TWO TIMES A DAY
     Route: 055
     Dates: start: 201904
  5. SYMBICORT [Suspect]
     Active Substance: BUDESONIDE\FORMOTEROL FUMARATE DIHYDRATE
     Indication: ASTHMA
     Dosage: 3 PUFFS, TWO TIMES A DAY
     Route: 055
     Dates: start: 20200429
  6. SYMBICORT [Suspect]
     Active Substance: BUDESONIDE\FORMOTEROL FUMARATE DIHYDRATE
     Indication: ASTHMA
     Dosage: 160/4.5 MCG 2 PUFFS, TWO TIMES A DAY
     Route: 055
     Dates: start: 201907
  7. VENTOLIN [Concomitant]
     Active Substance: ALBUTEROL SULFATE
     Indication: ASTHMA
     Dosage: 90.0UG AS REQUIRED
  8. IPRAPROPIUM [Concomitant]
     Indication: CHEST DISCOMFORT
     Dosage: 0.5 MG/3MG/3ML EVERY 5-6 HOURS
     Route: 055
     Dates: start: 202001
  9. IPRAPROPIUM [Concomitant]
     Indication: WHEEZING
     Dosage: 0.5 MG/3MG/3ML EVERY 5-6 HOURS
     Route: 055
     Dates: start: 202001

REACTIONS (12)
  - Intentional product use issue [Unknown]
  - Product use issue [Unknown]
  - Suspected COVID-19 [Unknown]
  - Chronic obstructive pulmonary disease [Unknown]
  - Wheezing [Unknown]
  - Tremor [Unknown]
  - Hypersensitivity [Recovered/Resolved]
  - Dyspnoea [Unknown]
  - Pyrexia [Unknown]
  - Pneumonia [Recovered/Resolved]
  - Chest discomfort [Not Recovered/Not Resolved]
  - Device ineffective [Unknown]

NARRATIVE: CASE EVENT DATE: 201904
